FAERS Safety Report 15131061 (Version 3)
Quarter: 2018Q3

REPORT INFORMATION
  Report Type: Spontaneous
  Country: JP (occurrence: JP)
  Receive Date: 20180711
  Receipt Date: 20180809
  Transmission Date: 20181010
  Serious: Yes (Other)
  Sender: FDA-Public Use
  Company Number: JP-PFIZER INC-2018276981

PATIENT
  Age: 65 Year
  Sex: Male

DRUGS (4)
  1. CELECOX [Suspect]
     Active Substance: CELECOXIB
     Dosage: UNK, UNKNOWN FREQ.
     Route: 065
  2. CAFFEINE + SODIUM BENZOATE [Suspect]
     Active Substance: CAFFEINE\SODIUM BENZOATE
     Dosage: UNK, UNKNOWN FREQ.
     Route: 065
  3. ZOLPIDEM TARTRATE. [Suspect]
     Active Substance: ZOLPIDEM TARTRATE
     Dosage: UNK, UNKNOWN FREQ.
     Route: 065
  4. PREGABALIN. [Suspect]
     Active Substance: PREGABALIN
     Indication: HEADACHE
     Dosage: UNK, UNKNOWN FREQ.
     Route: 065

REACTIONS (1)
  - Meningitis eosinophilic [Recovering/Resolving]
